FAERS Safety Report 7301850-4 (Version None)
Quarter: 2011Q1

REPORT INFORMATION
  Report Type: 
  Country: None (occurrence: None)
  Receive Date: 20110218
  Receipt Date: 20110210
  Transmission Date: 20110831
  Serious: Yes (Other)
  Sender: FDA-Public Use
  Company Number: US-ROCHE-736957

PATIENT
  Sex: Female
  Weight: 77.1 kg

DRUGS (2)
  1. ACCUTANE [Suspect]
     Route: 065
     Dates: start: 19991201, end: 20000201
  2. ACCUTANE [Suspect]
     Indication: ACNE
     Route: 065
     Dates: start: 19981201, end: 19990201

REACTIONS (11)
  - INFLAMMATORY BOWEL DISEASE [None]
  - BONE PAIN [None]
  - SUICIDE ATTEMPT [None]
  - INTESTINAL HAEMORRHAGE [None]
  - VISION BLURRED [None]
  - INTESTINAL OBSTRUCTION [None]
  - CROHN'S DISEASE [None]
  - DEPRESSION [None]
  - SUICIDAL IDEATION [None]
  - COLITIS ULCERATIVE [None]
  - GASTROINTESTINAL INJURY [None]
